FAERS Safety Report 8046482-8 (Version None)
Quarter: 2012Q1

REPORT INFORMATION
  Report Type: 
  Country: None (occurrence: None)
  Receive Date: 20120113
  Receipt Date: 20120109
  Transmission Date: 20120608
  Serious: Yes (Other)
  Sender: FDA-Public Use
  Company Number: US-ABBOTT-12P-163-0892241-00

PATIENT
  Weight: 118.04 kg

DRUGS (1)
  1. HUMIRA [Suspect]
     Indication: RHEUMATOID ARTHRITIS
     Dates: start: 20100101, end: 20111101

REACTIONS (5)
  - BACK DISORDER [None]
  - INTERVERTEBRAL DISC OPERATION [None]
  - EXOSTOSIS [None]
  - PNEUMONIA [None]
  - ARTHRALGIA [None]
